FAERS Safety Report 6632103-5 (Version None)
Quarter: 2010Q1

REPORT INFORMATION
  Report Type: 
  Country: None (occurrence: None)
  Receive Date: 20100312
  Receipt Date: 20100218
  Transmission Date: 20100710
  Serious: Yes (Other)
  Sender: FDA-Public Use
  Company Number: US-ROCHE-689945

PATIENT
  Sex: Male
  Weight: 93 kg

DRUGS (1)
  1. CAPECITABINE [Suspect]
     Indication: COLORECTAL CANCER
     Dosage: DOSE: 2000MG TWICE DAILY X 14 DAYS
     Route: 048
     Dates: start: 20100115

REACTIONS (2)
  - BLOOD URINE PRESENT [None]
  - SENSORY DISTURBANCE [None]
